FAERS Safety Report 15555978 (Version 1)
Quarter: 2018Q4

REPORT INFORMATION
  Report Type: Report from Study
  Country: US (occurrence: US)
  Receive Date: 20181026
  Receipt Date: 20181026
  Transmission Date: 20190205
  Serious: Yes (Other)
  Sender: FDA-Public Use
  Company Number: US-VERTEX PHARMACEUTICALS-2018-005860

PATIENT
  Sex: Female

DRUGS (1)
  1. KALYDECO [Suspect]
     Active Substance: IVACAFTOR
     Indication: CYSTIC FIBROSIS
     Dosage: 150 MG, FEQUENCY UNKNOWN
     Route: 048
     Dates: start: 20170819, end: 2018

REACTIONS (5)
  - Loss of consciousness [Unknown]
  - Mood swings [Not Recovered/Not Resolved]
  - Anger [Not Recovered/Not Resolved]
  - Intentional self-injury [Unknown]
  - Amnesia [Unknown]

NARRATIVE: CASE EVENT DATE: 2018
